FAERS Safety Report 5291045-0 (Version None)
Quarter: 2007Q2

REPORT INFORMATION
  Report Type: 
  Country: None (occurrence: None)
  Receive Date: 20070409
  Receipt Date: 20061208
  Transmission Date: 20071010
  Serious: Yes (Other)
  Sender: FDA-Public Use
  Company Number: US-AVENTIS-200619943US

PATIENT
  Age: 47 Year
  Sex: Female
  Weight: 85 kg

DRUGS (4)
  1. LOVENOX [Suspect]
     Route: 042
     Dates: start: 20060828, end: 20060828
  2. ANGIOMAX [Suspect]
     Indication: PERCUTANEOUS CORONARY INTERVENTION
     Route: 042
     Dates: start: 20060830, end: 20060830
  3. INTEGRILIN [Suspect]
     Route: 042
     Dates: start: 20060828, end: 20060828
  4. REOPRO [Suspect]
     Route: 042
     Dates: start: 20060830, end: 20060830

REACTIONS (4)
  - CORONARY ARTERY THROMBOSIS [None]
  - DEVICE MALFUNCTION [None]
  - ELECTROCARDIOGRAM ST SEGMENT ELEVATION [None]
  - TROPONIN INCREASED [None]
